FAERS Safety Report 11445080 (Version 5)
Quarter: 2015Q4

REPORT INFORMATION
  Report Type: Spontaneous
  Country: BR (occurrence: BR)
  Receive Date: 20150902
  Receipt Date: 20151005
  Transmission Date: 20160304
  Serious: Yes (Hospitalization)
  Sender: FDA-Public Use
  Company Number: BR-JNJFOC-20150820828

PATIENT
  Sex: Female
  Weight: 61 kg

DRUGS (3)
  1. REMICADE [Suspect]
     Active Substance: INFLIXIMAB
     Indication: RHEUMATOID ARTHRITIS
     Dosage: 7 YEARS PRIOR TO THE DATE OF THIS REPORT
     Route: 042
     Dates: start: 200610, end: 201502
  2. MOTILIUM [Suspect]
     Active Substance: DOMPERIDONE
     Indication: GASTRIC DISORDER
     Route: 065
  3. REMICADE [Suspect]
     Active Substance: INFLIXIMAB
     Indication: RHEUMATOID ARTHRITIS
     Route: 042
     Dates: start: 201509

REACTIONS (10)
  - Respiratory disorder [Unknown]
  - Arthralgia [Unknown]
  - Tooth disorder [Unknown]
  - Allergic respiratory disease [Recovered/Resolved]
  - Skin mass [Unknown]
  - Influenza [Recovered/Resolved]
  - Gastritis [Unknown]
  - Rheumatoid arthritis [Not Recovered/Not Resolved]
  - Oral disorder [Unknown]
  - Musculoskeletal pain [Unknown]

NARRATIVE: CASE EVENT DATE: 2015
